FAERS Safety Report 6132437-7 (Version None)
Quarter: 2009Q1

REPORT INFORMATION
  Report Type: 
  Country: None (occurrence: None)
  Receive Date: 20090324
  Receipt Date: 20090309
  Transmission Date: 20090719
  Serious: Yes (Other)
  Sender: FDA-Public Use
  Company Number: 2009S1004117

PATIENT
  Age: 54 Year
  Sex: Female

DRUGS (1)
  1. RISPERIDONE [Suspect]
     Indication: SCHIZOPHRENIA
     Dates: start: 20060101

REACTIONS (4)
  - AMENORRHOEA [None]
  - HYPERPROLACTINAEMIA [None]
  - INTRACRANIAL ANEURYSM [None]
  - PITUITARY TUMOUR BENIGN [None]
